FAERS Safety Report 8242504-X (Version None)
Quarter: 2012Q1

REPORT INFORMATION
  Report Type: 
  Country: None (occurrence: None)
  Receive Date: 20120329
  Receipt Date: 20120322
  Transmission Date: 20120608
  Serious: Yes (Other)
  Sender: FDA-Public Use
  Company Number: JP-JNJFOC-20120301540

PATIENT

DRUGS (2)
  1. UNSPECIFED MEDICATIONS [Concomitant]
     Route: 065
  2. TRAMADOL HYDROCHLORIDE AND ACETAMINOPHEN [Suspect]
     Indication: PAIN
     Route: 048

REACTIONS (1)
  - HIGH DENSITY LIPOPROTEIN INCREASED [None]
